FAERS Safety Report 10314021 (Version 1)
Quarter: 2014Q3

REPORT INFORMATION
  Report Type: Spontaneous
  Country: IT (occurrence: IT)
  Receive Date: 20140718
  Receipt Date: 20140718
  Transmission Date: 20150326
  Serious: Yes (Hospitalization)
  Sender: FDA-Public Use
  Company Number: IT-WATSON-2014-15401

PATIENT
  Age: 43 Year
  Sex: Female

DRUGS (7)
  1. LYRICA [Suspect]
     Active Substance: PREGABALIN
     Indication: DRUG ABUSE
     Dosage: 6750 MG, TOTAL
     Route: 048
     Dates: start: 20140701, end: 20140701
  2. DEPAKENE [Suspect]
     Active Substance: VALPROIC ACID
     Indication: DRUG ABUSE
     Dosage: 5000 MG, TOTAL
     Route: 048
     Dates: start: 20140701, end: 20140701
  3. EUTIROX [Concomitant]
     Active Substance: LEVOTHYROXINE SODIUM
     Indication: PRODUCT USED FOR UNKNOWN INDICATION
     Dosage: UNK
     Route: 065
  4. SERTRALINA ACTAVIS [Suspect]
     Active Substance: SERTRALINE HYDROCHLORIDE
     Indication: DRUG ABUSE
     Dosage: 1000 MG, TOTAL
     Route: 048
     Dates: start: 20140701, end: 20140701
  5. FOLINA /00024201/ [Suspect]
     Active Substance: FOLIC ACID
     Indication: DRUG ABUSE
     Dosage: 100 MG, TOTAL
     Route: 048
     Dates: start: 20140701, end: 20140701
  6. DEPAKENE [Suspect]
     Active Substance: VALPROIC ACID
     Indication: DRUG ABUSE
     Dosage: 3600 MG, TOTAL
     Route: 048
     Dates: start: 20140701, end: 20140701
  7. RISPERDAL [Suspect]
     Active Substance: RISPERIDONE
     Indication: DRUG ABUSE
     Dosage: 30 MG, TOTAL
     Route: 048
     Dates: start: 20140701, end: 20140701

REACTIONS (5)
  - Bradyphrenia [Recovering/Resolving]
  - Drug abuse [Recovering/Resolving]
  - Bradykinesia [Recovering/Resolving]
  - Asthenia [Recovering/Resolving]
  - Somnolence [Recovering/Resolving]

NARRATIVE: CASE EVENT DATE: 20140701
